FAERS Safety Report 25107221 (Version 4)
Quarter: 2025Q2

REPORT INFORMATION
  Report Type: Report from Study
  Country: US (occurrence: US)
  Receive Date: 20250321
  Receipt Date: 20250405
  Transmission Date: 20250717
  Serious: Yes (Death)
  Sender: ROCHE
  Company Number: US-ROCHE-10000238476

PATIENT
  Age: 77 Year
  Sex: Female

DRUGS (1)
  1. ACTEMRA [Suspect]
     Active Substance: TOCILIZUMAB
     Indication: Rheumatoid arthritis
     Route: 042

REACTIONS (1)
  - Lung neoplasm malignant [Fatal]
